FAERS Safety Report 6297656-8 (Version None)
Quarter: 2009Q3

REPORT INFORMATION
  Report Type: 
  Country: None (occurrence: None)
  Receive Date: 20090805
  Receipt Date: 20090724
  Transmission Date: 20100115
  Serious: Yes (Death, Other)
  Sender: FDA-Public Use
  Company Number: JP-PFIZER INC-2009246431

PATIENT
  Age: 82 Year

DRUGS (9)
  1. ZITHROMAC SR [Suspect]
     Indication: PNEUMONIA
     Dosage: 2 G, 1X/DAY
     Route: 048
     Dates: start: 20090713, end: 20090713
  2. TEPRENONE [Suspect]
     Dosage: UNK
     Route: 048
     Dates: start: 20090713
  3. AZULENE SULFONATE SODIUM/L-GLUTAMINE [Suspect]
     Dosage: UNK
     Dates: start: 20090713
  4. SULPYRINE [Suspect]
     Dates: start: 20090713
  5. DOMPERIDONE [Suspect]
     Dosage: UNK
     Dates: start: 20090713
  6. AMBROXOL HYDROCHLORIDE [Suspect]
  7. BRICANYL [Concomitant]
     Dates: start: 20090713
  8. INDOMETACIN [Concomitant]
     Dates: start: 20090713
  9. ELECTROLYTE SOLUTIONS [Concomitant]
     Route: 042
     Dates: start: 20090713

REACTIONS (3)
  - CARDIAC ARREST [None]
  - DRUG INEFFECTIVE [None]
  - PNEUMONIA [None]
